FAERS Safety Report 4514435-X (Version None)
Quarter: 2004Q4

REPORT INFORMATION
  Report Type: 
  Country: None (occurrence: None)
  Receive Date: 20041126
  Receipt Date: 20041115
  Transmission Date: 20050328
  Serious: Yes (Life-Threatening, Other)
  Sender: FDA-Public Use
  Company Number: 15270

PATIENT
  Age: 26 Year
  Sex: Male

DRUGS (1)
  1. ETOMIDATE [Suspect]
     Indication: INTUBATION
     Dosage: IV ONE-TIME DOSE
     Route: 042
     Dates: start: 20041115

REACTIONS (1)
  - ACQUIRED METHAEMOGLOBINAEMIA [None]
